FAERS Safety Report 20323526 (Version 1)
Quarter: 2022Q1

REPORT INFORMATION
  Report Type: Spontaneous
  Country: US (occurrence: None)
  Receive Date: 20220111
  Receipt Date: 20220111
  Transmission Date: 20220423
  Serious: No
  Sender: FDA-Public Use
  Company Number: None

PATIENT
  Age: 74 Year
  Sex: Female
  Weight: 56 kg

DRUGS (7)
  1. XELODA [Suspect]
     Active Substance: CAPECITABINE
     Indication: Colon cancer
     Dosage: OTHER FREQUENCY : BID FOR 14/21 DAYS;?
     Route: 048
     Dates: start: 20211112, end: 20220110
  2. ATORVASTATIN [Concomitant]
     Active Substance: ATORVASTATIN
  3. FAMOTIDINE [Concomitant]
     Active Substance: FAMOTIDINE
  4. LISINOPRIL [Concomitant]
     Active Substance: LISINOPRIL
  5. METFORMIN HYDROCHLORIDE [Concomitant]
     Active Substance: METFORMIN HYDROCHLORIDE
  6. Miralax 17gm [Concomitant]
  7. Bactrim DS 800-160mg [Concomitant]

REACTIONS (2)
  - Lip swelling [None]
  - Cyanosis [None]

NARRATIVE: CASE EVENT DATE: 20220110
